FAERS Safety Report 18867905 (Version 2)
Quarter: 2021Q1

REPORT INFORMATION
  Report Type: Report from Study
  Country: FR (occurrence: FR)
  Receive Date: 20210209
  Receipt Date: 20210217
  Transmission Date: 20210420
  Serious: Yes (Life-Threatening, Hospitalization, Other)
  Sender: FDA-Public Use
  Company Number: NVSC2020FR241641

PATIENT
  Age: 48 Year
  Sex: Female
  Weight: 168 kg

DRUGS (10)
  1. BYL719 [Suspect]
     Active Substance: ALPELISIB
     Dosage: 250 MG, QD
     Route: 048
     Dates: start: 20200811, end: 20200827
  2. COUMADINE [Concomitant]
     Active Substance: WARFARIN SODIUM
     Indication: VENTRICULAR TACHYCARDIA
     Dosage: 6 MG (5 THEN 6)
     Route: 065
     Dates: start: 20200811
  3. JANUVIA [Concomitant]
     Active Substance: SITAGLIPTIN PHOSPHATE
     Indication: PRODUCT USED FOR UNKNOWN INDICATION
     Dosage: DOSE: 100 X 1, START DATE REPORTED AS LONG STANDING
     Route: 065
  4. BYL719 [Suspect]
     Active Substance: ALPELISIB
     Indication: CLOVES SYNDROME
     Dosage: UNK
     Route: 048
     Dates: start: 201905, end: 20200807
  5. SEROPLEX [Concomitant]
     Active Substance: ESCITALOPRAM OXALATE
     Indication: DEPRESSION
     Dosage: 10 MG (START DATE REPORTED AS LONG STANDING)
     Route: 065
  6. HEPARIN [Concomitant]
     Active Substance: HEPARIN SODIUM
     Indication: COAGULOPATHY
     Dosage: UNK
     Route: 065
  7. LYRICA [Concomitant]
     Active Substance: PREGABALIN
     Indication: PAIN
     Dosage: 375 MG (START DATE REPORTED AS LONG STANDING)
     Route: 065
  8. BYL719 [Suspect]
     Active Substance: ALPELISIB
     Dosage: 250 MG, QD
     Route: 048
     Dates: start: 20200923
  9. ARIXTRA [Concomitant]
     Active Substance: FONDAPARINUX SODIUM
     Indication: PRODUCT USED FOR UNKNOWN INDICATION
     Dosage: 10 OT
     Route: 065
     Dates: start: 20200811, end: 20200826
  10. LEVOTHYROX [Concomitant]
     Active Substance: LEVOTHYROXINE
     Indication: HYPOTHYROIDISM
     Dosage: UNK, (START DATE REPORTED AS LONG STANDING)
     Route: 065

REACTIONS (4)
  - Hyperglycaemia [Not Recovered/Not Resolved]
  - Metrorrhagia [Recovered/Resolved]
  - Glycosylated haemoglobin increased [Unknown]
  - Haemoperitoneum [Unknown]

NARRATIVE: CASE EVENT DATE: 20200810
